FAERS Safety Report 8589686-8 (Version None)
Quarter: 2012Q2

REPORT INFORMATION
  Report Type: 
  Country: None (occurrence: None)
  Receive Date: 20120423
  Receipt Date: 20101013
  Transmission Date: 20120825
  Serious: Yes (Other)
  Sender: FDA-Public Use
  Company Number: PHHY2010US68866

PATIENT
  Sex: Female

DRUGS (1)
  1. FEMARA [Suspect]
     Dosage: 2.5 MG, UNK, ORAL
     Route: 048

REACTIONS (3)
  - CATARACT [None]
  - VISUAL IMPAIRMENT [None]
  - VISION BLURRED [None]
